FAERS Safety Report 13630823 (Version 1)
Quarter: 2017Q2

REPORT INFORMATION
  Report Type: Spontaneous
  Country: US (occurrence: US)
  Receive Date: 20170608
  Receipt Date: 20170608
  Transmission Date: 20170830
  Serious: No
  Sender: FDA-Public Use
  Company Number: US-SHIRE-US201711680

PATIENT
  Age: 50 Year
  Sex: Female
  Weight: 63.49 kg

DRUGS (1)
  1. XIIDRA [Suspect]
     Active Substance: LIFITEGRAST
     Indication: DRY EYE
     Dosage: 1 DROP EACH EYE, 2X/DAY:BID
     Route: 047
     Dates: start: 201701, end: 20170521

REACTIONS (15)
  - Viral upper respiratory tract infection [Recovered/Resolved]
  - Depressed mood [Unknown]
  - Adverse drug reaction [Not Recovered/Not Resolved]
  - Malaise [Recovered/Resolved]
  - Cough [Not Recovered/Not Resolved]
  - Dysphonia [Not Recovered/Not Resolved]
  - Stress [Not Recovered/Not Resolved]
  - Hypersensitivity [Recovered/Resolved]
  - Bronchitis [Not Recovered/Not Resolved]
  - Drug dose omission [Recovered/Resolved]
  - Sinusitis [Recovered/Resolved]
  - Product quality issue [Unknown]
  - Rhinorrhoea [Recovered/Resolved]
  - Dysgeusia [Unknown]
  - Product packaging issue [Unknown]

NARRATIVE: CASE EVENT DATE: 2017
